FAERS Safety Report 17829611 (Version 1)
Quarter: 2020Q2

REPORT INFORMATION
  Report Type: Spontaneous
  Country: NO (occurrence: NO)
  Receive Date: 20200527
  Receipt Date: 20200527
  Transmission Date: 20200714
  Serious: Yes (Death, Other)
  Sender: FDA-Public Use
  Company Number: NO-SA-2020SA136337

PATIENT
  Age: 54 Year
  Sex: Female
  Weight: 61 kg

DRUGS (7)
  1. FLUOROURACIL. [Suspect]
     Active Substance: FLUOROURACIL
     Indication: COLON CANCER STAGE III
     Dosage: 675 MG, TOTAL
     Route: 042
     Dates: start: 20190930
  2. AFIPRAN [Concomitant]
     Active Substance: METOCLOPRAMIDE HYDROCHLORIDE
     Dosage: 10 MG, PRN, AMOUNT TAKEN NOT KNOWN.
     Route: 048
  3. DEXAMETHASONE. [Concomitant]
     Active Substance: DEXAMETHASONE
     Dosage: 8 MG, QD
     Route: 048
     Dates: start: 20190930
  4. ZOFRAN [Concomitant]
     Active Substance: ONDANSETRON HYDROCHLORIDE
     Indication: NAUSEA
     Dosage: 8 MG, BID
     Route: 048
     Dates: start: 20190930
  5. OXALIPLATIN. [Suspect]
     Active Substance: OXALIPLATIN
     Indication: COLON CANCER STAGE III
     Dosage: 140 MG, TOTAL
     Route: 042
     Dates: start: 20190930
  6. FLUOROURACIL. [Suspect]
     Active Substance: FLUOROURACIL
     Dosage: 4050 MG, TOTAL, TO BE INFUSED OVER 46 HOURS.
     Route: 042
     Dates: start: 20190930
  7. CALCIUM FOLINATE [Concomitant]
     Active Substance: LEUCOVORIN CALCIUM
     Indication: COLON CANCER STAGE III
     Dosage: 675 MG, TOTAL
     Dates: start: 20190930

REACTIONS (1)
  - Death [Fatal]

NARRATIVE: CASE EVENT DATE: 20191001
